FAERS Safety Report 16659120 (Version 2)
Quarter: 2019Q3

REPORT INFORMATION
  Report Type: Spontaneous
  Country: GB (occurrence: GB)
  Receive Date: 20190802
  Receipt Date: 20190806
  Transmission Date: 20191004
  Serious: Yes (Other)
  Sender: FDA-Public Use
  Company Number: GB-CONCORDIA PHARMACEUTICALS INC.-GSH201907-001735

PATIENT
  Age: 39 Year
  Sex: Male

DRUGS (5)
  1. BISOPROLOL [Concomitant]
     Active Substance: BISOPROLOL
  2. EPLERENONE. [Concomitant]
     Active Substance: EPLERENONE
  3. SOTALOL. [Concomitant]
     Active Substance: SOTALOL
  4. PREDNISOLONE. [Suspect]
     Active Substance: PREDNISOLONE
     Indication: CARDIAC SARCOIDOSIS
     Route: 048
  5. AMIODARONE [Concomitant]
     Active Substance: AMIODARONE

REACTIONS (3)
  - Ventricular tachycardia [Recovering/Resolving]
  - Ventricular fibrillation [Recovering/Resolving]
  - Ventricular extrasystoles [Recovering/Resolving]
